FAERS Safety Report 4353138-1 (Version None)
Quarter: 2004Q2

REPORT INFORMATION
  Report Type: 
  Country: None (occurrence: None)
  Receive Date: 20040429
  Receipt Date: 20040420
  Transmission Date: 20050107
  Serious: Yes (Other)
  Sender: FDA-Public Use
  Company Number: 2004209877DE

PATIENT
  Age: 61 Year
  Sex: Male

DRUGS (2)
  1. GENOTROPIN [Suspect]
     Indication: HYPOPITUITARISM
     Dates: start: 19981101, end: 20040314
  2. TESTOSTERONE [Concomitant]

REACTIONS (2)
  - DIABETES MELLITUS [None]
  - NEOPLASM RECURRENCE [None]
